FAERS Safety Report 16376951 (Version 1)
Quarter: 2019Q2

REPORT INFORMATION
  Report Type: Spontaneous
  Country: CN (occurrence: CN)
  Receive Date: 20190531
  Receipt Date: 20190531
  Transmission Date: 20190711
  Serious: Yes (Hospitalization, Other)
  Sender: FDA-Public Use
  Company Number: CN-PFIZER INC-2019230072

PATIENT
  Age: 17 Year
  Sex: Female
  Weight: 45 kg

DRUGS (1)
  1. CYTOSAR [Suspect]
     Active Substance: CYTARABINE
     Indication: ACUTE MYELOID LEUKAEMIA
     Dosage: 1000 MG, 1X/DAY
     Route: 041
     Dates: start: 20190425, end: 20190426

REACTIONS (6)
  - Gingival swelling [Recovering/Resolving]
  - Gingival pain [Recovering/Resolving]
  - Bone marrow failure [Unknown]
  - Lymphadenopathy [Recovering/Resolving]
  - Infection [Unknown]
  - Tongue ulceration [Recovering/Resolving]

NARRATIVE: CASE EVENT DATE: 20190426
